FAERS Safety Report 6218617-0 (Version None)
Quarter: 2009Q2

REPORT INFORMATION
  Report Type: 
  Country: None (occurrence: None)
  Receive Date: 20090608
  Receipt Date: 20090601
  Transmission Date: 20091009
  Serious: Yes (Hospitalization)
  Sender: FDA-Public Use
  Company Number: ZA-AVENTIS-200915285GDDC

PATIENT
  Age: 1 Day
  Sex: Female

DRUGS (4)
  1. LANTUS [Suspect]
     Indication: DIABETIC RELATIVE
     Route: 064
     Dates: start: 20080801
  2. LANTUS [Suspect]
     Route: 064
     Dates: end: 20090414
  3. APIDRA [Suspect]
     Indication: DIABETIC RELATIVE
     Route: 064
     Dates: start: 20080801
  4. APIDRA [Suspect]
     Route: 064
     Dates: end: 20090414

REACTIONS (2)
  - DRUG EXPOSURE DURING PREGNANCY [None]
  - RESPIRATORY DISTRESS [None]
